FAERS Safety Report 13640587 (Version 1)
Quarter: 2017Q2

REPORT INFORMATION
  Report Type: Spontaneous
  Country: US (occurrence: US)
  Receive Date: 20170609
  Receipt Date: 20170609
  Transmission Date: 20170830
  Serious: No
  Sender: FDA-Public Use
  Company Number: None

PATIENT
  Age: 75 Year
  Sex: Female
  Weight: 81 kg

DRUGS (3)
  1. TAXOL [Suspect]
     Active Substance: PACLITAXEL
     Dates: end: 20170505
  2. CARBOPLATIN. [Suspect]
     Active Substance: CARBOPLATIN
     Dates: end: 20170505
  3. METFORMIN HYDROCHLORIDE. [Suspect]
     Active Substance: METFORMIN HYDROCHLORIDE
     Dates: end: 20170524

REACTIONS (7)
  - Tachypnoea [None]
  - Respiratory failure [None]
  - Hypotension [None]
  - Tachycardia [None]
  - Pneumothorax [None]
  - Pleural effusion [None]
  - Condition aggravated [None]

NARRATIVE: CASE EVENT DATE: 20170525
